FAERS Safety Report 11529102 (Version 1)
Quarter: 2015Q3

REPORT INFORMATION
  Report Type: Spontaneous
  Country: DK (occurrence: DK)
  Receive Date: 20150921
  Receipt Date: 20150921
  Transmission Date: 20151125
  Serious: Yes (Death, Congenital Anomaly)
  Sender: FDA-Public Use
  Company Number: DK-WATSON-2015-19947

PATIENT
  Age: 11 Week

DRUGS (1)
  1. SERTRALINE [Suspect]
     Active Substance: SERTRALINE HYDROCHLORIDE
     Indication: DEPRESSION
     Dosage: UNK
     Route: 064

REACTIONS (5)
  - Foetal exposure during pregnancy [Recovered/Resolved]
  - Congenital absence of cranial vault [Fatal]
  - Dilatation ventricular [Fatal]
  - Congenital diaphragmatic hernia [Fatal]
  - Congenital hydrocephalus [Fatal]
